FAERS Safety Report 8074127-X (Version None)
Quarter: 2012Q1

REPORT INFORMATION
  Report Type: 
  Country: None (occurrence: None)
  Receive Date: 20120126
  Receipt Date: 20120123
  Transmission Date: 20120608
  Serious: Yes (Other)
  Sender: FDA-Public Use
  Company Number: CA-BAYER-2012-007143

PATIENT
  Age: 31 Year
  Sex: Female
  Weight: 164 kg

DRUGS (1)
  1. GADAVIST [Suspect]
     Indication: PRODUCT USED FOR UNKNOWN INDICATION
     Dosage: 7.5 ML, ONCE
     Route: 042
     Dates: start: 20111219, end: 20111219

REACTIONS (5)
  - ERYTHEMA [None]
  - PRURITUS [None]
  - MALAISE [None]
  - NAUSEA [None]
  - OCULAR HYPERAEMIA [None]
